FAERS Safety Report 25109128 (Version 2)
Quarter: 2025Q2

REPORT INFORMATION
  Report Type: Report from Study
  Country: US (occurrence: US)
  Receive Date: 20250322
  Receipt Date: 20250403
  Transmission Date: 20250717
  Serious: No
  Sender: SANDOZ
  Company Number: US-SANDOZ-SDZ2025US017557

PATIENT
  Age: 0 Year
  Sex: Male

DRUGS (6)
  1. OMNITROPE [Suspect]
     Active Substance: SOMATROPIN
     Indication: Prader-Willi syndrome
     Dosage: 0.15 MG, QD (OMNITROPE 5 MG/1.5 ML SOLUTION FOR INJECTION IN CARTRIDGE)
     Route: 058
     Dates: start: 20250320, end: 20250325
  2. OMNITROPE [Suspect]
     Active Substance: SOMATROPIN
     Indication: Prader-Willi syndrome
     Dosage: 0.15 MG, QD (OMNITROPE 5 MG/1.5 ML SOLUTION FOR INJECTION IN CARTRIDGE)
     Route: 058
     Dates: start: 20250320, end: 20250325
  3. OMNITROPE [Suspect]
     Active Substance: SOMATROPIN
     Dosage: 0.15 MG, QD (OMNITROPE 5 MG/1.5 ML SOLUTION FOR INJECTION IN CARTRIDGE)
     Route: 058
     Dates: start: 20250320, end: 20250324
  4. OMNITROPE [Suspect]
     Active Substance: SOMATROPIN
     Dosage: 0.15 MG, QD (OMNITROPE 5 MG/1.5 ML SOLUTION FOR INJECTION IN CARTRIDGE)
     Route: 058
     Dates: start: 20250320, end: 20250324
  5. OMNITROPE [Suspect]
     Active Substance: SOMATROPIN
     Route: 065
  6. OMNITROPE [Suspect]
     Active Substance: SOMATROPIN
     Route: 065

REACTIONS (2)
  - Incorrect dose administered by device [Unknown]
  - Device leakage [Unknown]

NARRATIVE: CASE EVENT DATE: 20250320
